FAERS Safety Report 5858803-2 (Version None)
Quarter: 2008Q3

REPORT INFORMATION
  Report Type: 
  Country: None (occurrence: None)
  Receive Date: 20080825
  Receipt Date: 20080812
  Transmission Date: 20090109
  Serious: Yes (Hospitalization, Other)
  Sender: FDA-Public Use
  Company Number: GXBR2008US01644

PATIENT
  Age: 79 Year
  Sex: Female
  Weight: 79.9 kg

DRUGS (20)
  1. DICLOFENAC SODIUM [Suspect]
  2. DIOVAN [Suspect]
  3. LASIX [Suspect]
  4. ETANERCEPT (ETANERCEPT) [Suspect]
     Dosage: SUBCUTANEOUS
     Route: 058
     Dates: start: 20060202, end: 20060815
  5. PANTOPRAZOLE SODIUM [Concomitant]
  6. FLUOXETINE [Concomitant]
  7. PREDNISONE TAB [Concomitant]
  8. ATORVASTATIN CALCIUM [Concomitant]
  9. CARVEDILOL [Concomitant]
  10. IRON (IRON) [Concomitant]
  11. ALBUTEROL SULFATE [Concomitant]
  12. IPRATROPIUM BROMIDE [Concomitant]
  13. WARFARIN SODIUM [Concomitant]
  14. ERGOCALCIFEROL (ERGOCALCIFEROL) [Concomitant]
  15. CALCIUM CARBONATE (CALCIUM CARBONATE) [Concomitant]
  16. POTASSIUM CHLORIDE [Concomitant]
  17. ACETAMINOPHEN AND OXYCODONE HCL [Concomitant]
  18. NIFEDIPINE [Concomitant]
  19. TIOTROPIUM (TIOTROPIUM) [Concomitant]
  20. ERYTHROPOIETIN (ERYTHROPOIETIN) [Concomitant]

REACTIONS (25)
  - ANAEMIA [None]
  - BRONCHITIS [None]
  - CARDIAC FAILURE CONGESTIVE [None]
  - CARDIOMYOPATHY [None]
  - CATARACT [None]
  - CELLULITIS [None]
  - CHRONIC OBSTRUCTIVE PULMONARY DISEASE [None]
  - DEEP VEIN THROMBOSIS [None]
  - DEHYDRATION [None]
  - GROIN PAIN [None]
  - HAEMATURIA [None]
  - HYPERLIPIDAEMIA [None]
  - HYPERTENSION [None]
  - MYOCARDIAL INFARCTION [None]
  - OCCULT BLOOD POSITIVE [None]
  - OEDEMA PERIPHERAL [None]
  - OVARIAN CYST [None]
  - PAIN IN EXTREMITY [None]
  - PNEUMONIA [None]
  - RENAL ARTERY STENOSIS [None]
  - RENAL ATROPHY [None]
  - RENAL FAILURE ACUTE [None]
  - RENAL FAILURE CHRONIC [None]
  - RENAL TUBULAR NECROSIS [None]
  - URINARY TRACT INFECTION [None]
